FAERS Safety Report 6581012-9 (Version None)
Quarter: 2010Q1

REPORT INFORMATION
  Report Type: 
  Country: None (occurrence: None)
  Receive Date: 20100215
  Receipt Date: 20100202
  Transmission Date: 20100710
  Serious: No
  Sender: FDA-Public Use
  Company Number: US-ELI_LILLY_AND_COMPANY-US200908006710

PATIENT
  Sex: Male

DRUGS (8)
  1. FORTEO [Suspect]
     Indication: OSTEOPOROSIS
     Dates: start: 20090101, end: 20090101
  2. FORTEO [Suspect]
     Dates: start: 20091201
  3. BENICAR [Concomitant]
  4. NORVASC [Concomitant]
  5. PRILOSEC [Concomitant]
  6. CELEXA [Concomitant]
  7. VITAMINS NOS [Concomitant]
  8. ZOLOFT [Concomitant]

REACTIONS (3)
  - HIATUS HERNIA [None]
  - MALAISE [None]
  - NAUSEA [None]
